FAERS Safety Report 5737152-7 (Version None)
Quarter: 2008Q2

REPORT INFORMATION
  Report Type: 
  Country: None (occurrence: None)
  Receive Date: 20080513
  Receipt Date: 20080513
  Transmission Date: 20081010
  Serious: No
  Sender: FDA-Public Use
  Company Number: None

PATIENT
  Age: 28 Year
  Sex: Female
  Weight: 65.7716 kg

DRUGS (2)
  1. PAXIL [Suspect]
     Indication: DEPRESSION
     Dosage: 40 MG DAILY PO
     Route: 048
     Dates: start: 19980901, end: 20080425
  2. PAXIL [Suspect]
     Indication: PANIC ATTACK
     Dosage: 40 MG DAILY PO
     Route: 048
     Dates: start: 19980901, end: 20080425

REACTIONS (12)
  - ABDOMINAL DISCOMFORT [None]
  - CRYING [None]
  - DIARRHOEA [None]
  - DRUG WITHDRAWAL SYNDROME [None]
  - FEELING ABNORMAL [None]
  - INSOMNIA [None]
  - MALAISE [None]
  - MIGRAINE [None]
  - NIGHTMARE [None]
  - ORAL INTAKE REDUCED [None]
  - PARAESTHESIA [None]
  - VOMITING [None]
